FAERS Safety Report 21942355 (Version 1)
Quarter: 2023Q1

REPORT INFORMATION
  Report Type: Report from Study
  Country: US (occurrence: US)
  Receive Date: 20230202
  Receipt Date: 20230202
  Transmission Date: 20230417
  Serious: No
  Sender: FDA-Public Use
  Company Number: US-EXELIXIS-CABO-22057492

PATIENT
  Sex: Female

DRUGS (4)
  1. CABOMETYX [Suspect]
     Active Substance: CABOZANTINIB S-MALATE
     Indication: Renal cancer
     Dosage: 40 MG, QD
     Route: 048
     Dates: start: 20221018
  2. CABOMETYX [Suspect]
     Active Substance: CABOZANTINIB S-MALATE
     Dosage: 40 MG, QD
     Route: 048
  3. TRAMADOL [Concomitant]
     Active Substance: TRAMADOL
     Indication: Migraine
     Dosage: UNK
  4. TYLENOL [Concomitant]
     Active Substance: ACETAMINOPHEN
     Indication: Migraine
     Dosage: UNK

REACTIONS (12)
  - Oropharyngeal pain [Unknown]
  - Back pain [Unknown]
  - Stomatitis [Unknown]
  - Decreased appetite [Unknown]
  - Nausea [Unknown]
  - Fatigue [Unknown]
  - Constipation [Unknown]
  - Abdominal pain upper [Unknown]
  - Palmar-plantar erythrodysaesthesia syndrome [Recovering/Resolving]
  - Dysphonia [Unknown]
  - Blood pressure increased [Unknown]
  - Headache [Unknown]
